FAERS Safety Report 23807717 (Version 1)
Quarter: 2024Q2

REPORT INFORMATION
  Report Type: Spontaneous
  Country: FR (occurrence: FR)
  Receive Date: 20240502
  Receipt Date: 20240502
  Transmission Date: 20240717
  Serious: Yes (Other)
  Sender: FDA-Public Use
  Company Number: None

PATIENT
  Age: 53 Year
  Sex: Female

DRUGS (13)
  1. PEMETREXED [Suspect]
     Active Substance: PEMETREXED
     Indication: Non-small cell lung cancer metastatic
     Dates: start: 20231127, end: 20240311
  2. PEMBROLIZUMAB [Suspect]
     Active Substance: PEMBROLIZUMAB
     Indication: Non-small cell lung cancer metastatic
     Dates: start: 20231127, end: 20240311
  3. MAGNESIUM SULFATE [Concomitant]
     Active Substance: MAGNESIUM SULFATE\MAGNESIUM SULFATE HEPTAHYDRATE
  4. FLUMAZENIL [Concomitant]
     Active Substance: FLUMAZENIL
  5. FILGRASTIM [Concomitant]
     Active Substance: FILGRASTIM
  6. FENTANYL [Concomitant]
     Active Substance: FENTANYL\FENTANYL CITRATE
  7. TIAPRIDE HYDROCHLORIDE [Concomitant]
     Active Substance: TIAPRIDE HYDROCHLORIDE
  8. MORPHINE SULFATE [Concomitant]
     Active Substance: MORPHINE SULFATE
  9. CARBOPLATIN [Concomitant]
     Active Substance: CARBOPLATIN
  10. POTASSIUM CHLORIDE [Concomitant]
     Active Substance: POTASSIUM CHLORIDE
  11. LEVETIRACETAM [Concomitant]
     Active Substance: LEVETIRACETAM
  12. FOLIC ACID [Concomitant]
     Active Substance: FOLIC ACID
  13. OXAZEPAM [Concomitant]
     Active Substance: OXAZEPAM

REACTIONS (1)
  - Pancytopenia [Not Recovered/Not Resolved]

NARRATIVE: CASE EVENT DATE: 20240323
